FAERS Safety Report 13298622 (Version 1)
Quarter: 2017Q1

REPORT INFORMATION
  Report Type: Other
  Country: FR (occurrence: FR)
  Receive Date: 20170306
  Receipt Date: 20170306
  Transmission Date: 20170428
  Serious: Yes (Hospitalization)
  Sender: FDA-Public Use
  Company Number: FR-VALIDUS PHARMACEUTICALS LLC-FR-2017VAL000305

PATIENT
  Age: 76 Year
  Sex: Male

DRUGS (9)
  1. KARDEGIC [Suspect]
     Active Substance: ASPIRIN LYSINE
     Indication: INFARCTION
     Dosage: 160 MILLIGRAM(S);DAILY
     Route: 048
     Dates: start: 2004
  2. BIPRETERAX                         /01421201/ [Suspect]
     Active Substance: INDAPAMIDE\PERINDOPRIL ERBUMINE
     Indication: HYPERTENSION
     Dosage: 1 DOSAGE FORM;DAILY
     Route: 048
     Dates: start: 201104
  3. STABLON [Suspect]
     Active Substance: TIANEPTINE
     Indication: PRODUCT USED FOR UNKNOWN INDICATION
     Dosage: 25 MILLIGRAM(S);DAILY
     Route: 048
     Dates: start: 201403
  4. LYRICA [Suspect]
     Active Substance: PREGABALIN
     Indication: NEURALGIA
     Dosage: 150 MILLIGRAM(S);DAILY
     Route: 048
     Dates: start: 201108
  5. INEXIUM                            /01479302/ [Suspect]
     Active Substance: ESOMEPRAZOLE MAGNESIUM
     Indication: ULCER
     Dosage: 40 MILLIGRAM(S);DAILY
     Route: 048
     Dates: start: 2006
  6. FUROSEMIDE. [Suspect]
     Active Substance: FUROSEMIDE
     Indication: PRODUCT USED FOR UNKNOWN INDICATION
     Dosage: 20 MILLIGRAM(S);DAILY
     Route: 048
  7. GLIVEC [Suspect]
     Active Substance: IMATINIB MESYLATE
     Indication: CHRONIC MYELOID LEUKAEMIA
     Dosage: 400 MILLIGRAM(S);DAILY
     Route: 048
     Dates: start: 20040401, end: 20140728
  8. GLIVEC [Suspect]
     Active Substance: IMATINIB MESYLATE
     Dosage: 400 MILLIGRAM(S);DAILY
     Route: 048
     Dates: start: 20141118
  9. GLIVEC [Suspect]
     Active Substance: IMATINIB MESYLATE
     Dosage: 300 MILLIGRAM (S); DAILY
     Route: 048
     Dates: start: 20161219

REACTIONS (2)
  - Neuroendocrine carcinoma [Not Recovered/Not Resolved]
  - Bladder cancer [Recovered/Resolved]

NARRATIVE: CASE EVENT DATE: 201510
